FAERS Safety Report 12955510 (Version 1)
Quarter: 2016Q4

REPORT INFORMATION
  Report Type: Spontaneous
  Country: JP (occurrence: JP)
  Receive Date: 20161118
  Receipt Date: 20161118
  Transmission Date: 20170207
  Serious: Yes (Hospitalization)
  Sender: FDA-Public Use
  Company Number: JP-JNJFOC-20161117022

PATIENT
  Age: 3 Decade
  Sex: Female

DRUGS (4)
  1. REMICADE [Suspect]
     Active Substance: INFLIXIMAB
     Indication: ANKYLOSING SPONDYLITIS
     Dosage: THIRD DOSE
     Route: 042
     Dates: start: 201610, end: 201610
  2. AZULFIDINE [Concomitant]
     Active Substance: SULFASALAZINE
     Dosage: LATE OCT-2016
     Route: 048
     Dates: start: 201607
  3. REMICADE [Suspect]
     Active Substance: INFLIXIMAB
     Indication: ANKYLOSING SPONDYLITIS
     Dosage: FIRST DOSE
     Route: 042
     Dates: start: 201609
  4. METHOTREXATE. [Concomitant]
     Active Substance: METHOTREXATE
     Dosage: LATE OCT-2016
     Route: 048
     Dates: start: 201607, end: 201610

REACTIONS (1)
  - Polyarteritis nodosa [Not Recovered/Not Resolved]

NARRATIVE: CASE EVENT DATE: 201610
